FAERS Safety Report 9115308 (Version 1)
Quarter: 2013Q1

REPORT INFORMATION
  Report Type: Spontaneous
  Country: US (occurrence: None)
  Receive Date: 20130221
  Receipt Date: 20130221
  Transmission Date: 20140127
  Serious: Yes (Hospitalization, Other)
  Sender: FDA-Public Use
  Company Number: None

PATIENT
  Age: 55 Year
  Sex: Female
  Weight: 63.5 kg

DRUGS (1)
  1. LISINOPRIL [Suspect]
     Indication: HYPERTENSION
     Route: 048
     Dates: start: 20121227, end: 20121227

REACTIONS (9)
  - Diarrhoea [None]
  - Abdominal distension [None]
  - Angioedema [None]
  - Abdominal pain [None]
  - Dizziness [None]
  - Dysstasia [None]
  - Vomiting [None]
  - Ascites [None]
  - Gastrointestinal disorder [None]
